FAERS Safety Report 6824004-4 (Version None)
Quarter: 2010Q3

REPORT INFORMATION
  Report Type: 
  Country: None (occurrence: None)
  Receive Date: 20100708
  Receipt Date: 20061211
  Transmission Date: 20110219
  Serious: No
  Sender: FDA-Public Use
  Company Number: US-PFIZER INC-2006113700

PATIENT
  Sex: Male
  Weight: 77.11 kg

DRUGS (14)
  1. CHANTIX [Suspect]
     Indication: SMOKING CESSATION THERAPY
     Dates: start: 20060901
  2. METFORMIN HCL [Concomitant]
  3. ACETYLSALICYLIC ACID [Concomitant]
  4. PREVACID [Concomitant]
  5. WARFARIN SODIUM [Concomitant]
  6. THEOPHYLLINE [Concomitant]
  7. KLOR-CON [Concomitant]
  8. VYTORIN [Concomitant]
  9. BENAZEPRIL HYDROCHLORIDE [Concomitant]
  10. ALL OTHER THERAPEUTIC PRODUCTS [Concomitant]
  11. FUROSEMIDE [Concomitant]
  12. HYDROCHLOROTHIAZIDE [Concomitant]
  13. METOPROLOL [Concomitant]
  14. OXYGEN [Concomitant]

REACTIONS (2)
  - NAUSEA [None]
  - VOMITING [None]
